FAERS Safety Report 22010282 (Version 1)
Quarter: 2023Q1

REPORT INFORMATION
  Report Type: Report from Study
  Country: EG (occurrence: EG)
  Receive Date: 20230220
  Receipt Date: 20230220
  Transmission Date: 20230417
  Serious: Yes (Other)
  Sender: FDA-Public Use
  Company Number: EG-002147023-NVSC2023EG035256

PATIENT
  Age: 53 Year
  Sex: Female

DRUGS (6)
  1. KISQALI [Suspect]
     Active Substance: RIBOCICLIB
     Indication: Breast cancer metastatic
     Dosage: 3 DOSAGE FORM, QD (FOR 21 DAYS AND 1 WEEK FREE)
     Route: 048
     Dates: start: 20220510
  2. VITAMIN D [Concomitant]
     Active Substance: VITAMIN D NOS
     Indication: Vitamin supplementation
     Dosage: 1 DOSAGE FORM, QD
     Route: 065
     Dates: start: 202209
  3. CALCIUM [Concomitant]
     Active Substance: CALCIUM
     Indication: Mineral supplementation
     Dosage: 1 DOSAGE FORM, QD (7-8YEARS AGO - START DATE))
     Route: 065
  4. IRON [Concomitant]
     Active Substance: IRON
     Indication: Mineral supplementation
     Dosage: 1 DOSAGE FORM, QD
     Route: 065
     Dates: start: 202209
  5. XGEVA [Concomitant]
     Active Substance: DENOSUMAB
     Indication: Osteoporosis
     Dosage: 1 DOSAGE FORM, QMO (1 INJECTION 1CM EVERY MONTH) (SINCE 4 YEARS)
     Route: 065
  6. XGEVA [Concomitant]
     Active Substance: DENOSUMAB
     Dosage: 1 DOSAGE FORM, Q2MO (1 INJECTION EVERY 2 MONTHS)
     Route: 065

REACTIONS (9)
  - Choking [Not Recovered/Not Resolved]
  - Madarosis [Not Recovered/Not Resolved]
  - Blood iron decreased [Recovering/Resolving]
  - Vitamin D decreased [Recovering/Resolving]
  - Alopecia [Not Recovered/Not Resolved]
  - Pigmentation disorder [Not Recovered/Not Resolved]
  - Hyperchlorhydria [Not Recovered/Not Resolved]
  - Cough [Not Recovered/Not Resolved]
  - Vomiting [Not Recovered/Not Resolved]

NARRATIVE: CASE EVENT DATE: 20220501
